FAERS Safety Report 7561545-9 (Version None)
Quarter: 2011Q2

REPORT INFORMATION
  Report Type: 
  Country: None (occurrence: None)
  Receive Date: 20110621
  Receipt Date: 20100524
  Transmission Date: 20111010
  Serious: No
  Sender: FDA-Public Use
  Company Number: US-ASTRAZENECA-2010SE23802

PATIENT
  Age: 81 Year
  Sex: Female

DRUGS (3)
  1. PULMICORT [Suspect]
     Indication: CHRONIC OBSTRUCTIVE PULMONARY DISEASE
     Route: 055
  2. IPRATROPIUM BROMIDE [Concomitant]
  3. ALBUTEROL [Concomitant]

REACTIONS (1)
  - LIMB INJURY [None]
